FAERS Safety Report 18079039 (Version 1)
Quarter: 2020Q3

REPORT INFORMATION
  Report Type: Spontaneous
  Country: US (occurrence: US)
  Receive Date: 20200728
  Receipt Date: 20200728
  Transmission Date: 20201103
  Serious: Yes (Hospitalization)
  Sender: FDA-Public Use
  Company Number: None

PATIENT
  Age: 59 Year
  Sex: Female
  Weight: 85 kg

DRUGS (1)
  1. OLANZAPINE. [Suspect]
     Active Substance: OLANZAPINE
     Dates: end: 20200717

REACTIONS (3)
  - Lymph gland infection [None]
  - Discomfort [None]
  - Pain [None]

NARRATIVE: CASE EVENT DATE: 20200722
